FAERS Safety Report 12502274 (Version 1)
Quarter: 2016Q2

REPORT INFORMATION
  Report Type: Report from Study
  Country: HU (occurrence: HU)
  Receive Date: 20160627
  Receipt Date: 20160627
  Transmission Date: 20160815
  Serious: Yes (Hospitalization)
  Sender: FDA-Public Use
  Company Number: HU-ABBVIE-15P-076-1414563-00

PATIENT
  Age: 71 Year
  Sex: Female

DRUGS (5)
  1. DUODOPA [Suspect]
     Active Substance: CARBIDOPA\LEVODOPA
     Dosage: MD: 7.0ML; CD: 3.3ML/H; ED: 1.5 ML
     Route: 050
  2. STALEVO [Concomitant]
     Active Substance: CARBIDOPA\ENTACAPONE\LEVODOPA
     Indication: PARKINSON^S DISEASE
     Dosage: 200/50/200 MG
     Route: 048
  3. DUODOPA [Suspect]
     Active Substance: CARBIDOPA\LEVODOPA
     Dosage: MD: 7.0ML; CD: 2.7 ML/H; ED: 2 ML
     Route: 050
     Dates: end: 20160620
  4. DUODOPA [Suspect]
     Active Substance: CARBIDOPA\LEVODOPA
     Indication: PARKINSON^S DISEASE
     Dosage: MD: 7.0ML; CRD: 3.6ML/H; ED: 1.5ML
     Route: 050
     Dates: start: 201211
  5. MIRAPEXIN [Concomitant]
     Active Substance: PRAMIPEXOLE
     Indication: PARKINSON^S DISEASE
     Route: 048

REACTIONS (12)
  - Hallucination [Not Recovered/Not Resolved]
  - Fall [Recovered/Resolved]
  - Stoma site pain [Not Recovered/Not Resolved]
  - Stoma site inflammation [Not Recovered/Not Resolved]
  - Keloid scar [Unknown]
  - Stoma site discharge [Unknown]
  - Medical device removal [Not Recovered/Not Resolved]
  - Gastrostomy [Not Recovered/Not Resolved]
  - Device difficult to use [Recovered/Resolved]
  - Weight decreased [Not Recovered/Not Resolved]
  - Device dislocation [Recovered/Resolved]
  - Stoma site erythema [Unknown]

NARRATIVE: CASE EVENT DATE: 201503
